FAERS Safety Report 6615564-7 (Version None)
Quarter: 2010Q1

REPORT INFORMATION
  Report Type: 
  Country: None (occurrence: None)
  Receive Date: 20100305
  Receipt Date: 20100301
  Transmission Date: 20100710
  Serious: Yes (Death, Other)
  Sender: FDA-Public Use
  Company Number: JP-BAYER-200913805BYL

PATIENT
  Age: 49 Year
  Sex: Male
  Weight: 52 kg

DRUGS (4)
  1. NEXAVAR [Suspect]
     Indication: RENAL CELL CARCINOMA
     Dosage: TOTAL DAILY DOSE: 800 MG  UNIT DOSE: 200 MG
     Route: 048
     Dates: start: 20090907, end: 20090927
  2. NEXAVAR [Suspect]
     Dosage: UNIT DOSE: 200 MG
     Route: 048
     Dates: start: 20090928, end: 20091005
  3. IMIPENEM AND CILASTATIN SODIUM [Concomitant]
     Indication: INFECTION
     Route: 042
     Dates: start: 20091002, end: 20091006
  4. PRODIF [Concomitant]
     Indication: INFECTION
     Route: 042
     Dates: start: 20090929, end: 20091006

REACTIONS (3)
  - HYPOPHOSPHATAEMIA [None]
  - PLATELET COUNT DECREASED [None]
  - RENAL CELL CARCINOMA [None]
